FAERS Safety Report 5126068-5 (Version None)
Quarter: 2006Q4

REPORT INFORMATION
  Report Type: 
  Country: None (occurrence: None)
  Receive Date: 20061012
  Receipt Date: 20060913
  Transmission Date: 20070319
  Serious: Yes (Hospitalization)
  Sender: FDA-Public Use
  Company Number: JP-AVENTIS-200612842JP

PATIENT
  Age: 84 Year
  Sex: Male
  Weight: 65.2 kg

DRUGS (6)
  1. AMARYL [Suspect]
     Indication: DIABETES MELLITUS
     Route: 048
     Dates: start: 20050801, end: 20060913
  2. BASEN [Concomitant]
     Indication: DIABETES MELLITUS
     Route: 048
     Dates: start: 20050801
  3. PANTOSIN [Concomitant]
     Indication: CONSTIPATION
     Route: 048
     Dates: start: 20060904, end: 20060913
  4. ALOSENN [Concomitant]
     Indication: CONSTIPATION
     Route: 048
     Dates: start: 20060904
  5. LAXOBERON [Concomitant]
     Indication: CONSTIPATION
     Dosage: DOSE: 2 TABLETS
     Route: 048
     Dates: start: 20060130, end: 20060913
  6. GLYCERIN ENEMA [Concomitant]
     Indication: CONSTIPATION
     Dosage: DOSE: 40 ML, 3 OR 4 TIMES/WEEK
     Route: 054
     Dates: start: 20060901

REACTIONS (3)
  - ABDOMINAL PAIN LOWER [None]
  - BLOOD CREATINE PHOSPHOKINASE INCREASED [None]
  - OEDEMA PERIPHERAL [None]
